FAERS Safety Report 7576603-2 (Version None)
Quarter: 2011Q2

REPORT INFORMATION
  Report Type: 
  Country: None (occurrence: None)
  Receive Date: 20110624
  Receipt Date: 20110624
  Transmission Date: 20111010
  Serious: Yes (Other)
  Sender: FDA-Public Use
  Company Number: None

PATIENT
  Age: 35 Year
  Sex: Male

DRUGS (1)
  1. NEUTROGENA FACIAL MOISTURIZER UNSPECIFIED [Suspect]
     Dosage: TOPICAL
     Route: 061

REACTIONS (1)
  - SKIN CANCER METASTATIC [None]
